FAERS Safety Report 11147790 (Version 1)
Quarter: 2015Q2

REPORT INFORMATION
  Report Type: Spontaneous
  Country: US (occurrence: None)
  Receive Date: 20150528
  Receipt Date: 20150528
  Transmission Date: 20150821
  Serious: No
  Sender: FDA-Public Use
  Company Number: None

PATIENT
  Sex: Female

DRUGS (1)
  1. TARCEVA [Suspect]
     Active Substance: ERLOTINIB HYDROCHLORIDE
     Route: 048
     Dates: start: 20150505, end: 20150527

REACTIONS (5)
  - Eye irritation [None]
  - Nausea [None]
  - Diarrhoea [None]
  - Fatigue [None]
  - Dyspnoea [None]
